FAERS Safety Report 7529383-0 (Version None)
Quarter: 2011Q2

REPORT INFORMATION
  Report Type: 
  Country: None (occurrence: None)
  Receive Date: 20110607
  Receipt Date: 20110530
  Transmission Date: 20111010
  Serious: Yes (Death, Hospitalization)
  Sender: FDA-Public Use
  Company Number: IT-JNJFOC-20110600682

PATIENT
  Sex: Female

DRUGS (3)
  1. CIPROFLOXACIN [Suspect]
     Indication: FRACTURE
     Route: 065
     Dates: start: 20100125, end: 20100215
  2. CEFTAZIDIME [Suspect]
     Indication: FRACTURE
     Route: 065
     Dates: start: 20091230, end: 20100124
  3. LEVOFLOXACIN [Suspect]
     Indication: FRACTURE
     Route: 065
     Dates: start: 20091230, end: 20100124

REACTIONS (3)
  - DEATH [None]
  - CLOSTRIDIUM COLITIS [None]
  - CANDIDIASIS [None]
